FAERS Safety Report 7656067-0 (Version None)
Quarter: 2011Q3

REPORT INFORMATION
  Report Type: 
  Country: None (occurrence: None)
  Receive Date: 20110804
  Receipt Date: 20110722
  Transmission Date: 20111222
  Serious: Yes (Other)
  Sender: FDA-Public Use
  Company Number: US-ELI_LILLY_AND_COMPANY-US201107007645

PATIENT
  Sex: Female

DRUGS (1)
  1. CYMBALTA [Suspect]
     Indication: FIBROMYALGIA
     Dosage: 60 MG, UNK
     Dates: start: 20100601, end: 20100701

REACTIONS (6)
  - MALAISE [None]
  - MOOD ALTERED [None]
  - IRRITABILITY [None]
  - SOMNOLENCE [None]
  - INTENTIONAL DRUG MISUSE [None]
  - HYSTERECTOMY [None]
